FAERS Safety Report 10224015 (Version 1)
Quarter: 2014Q2

REPORT INFORMATION
  Report Type: Spontaneous
  Country: US (occurrence: None)
  Receive Date: 20140605
  Receipt Date: 20140605
  Transmission Date: 20141212
  Serious: Yes (Death, Other)
  Sender: FDA-Public Use
  Company Number: ADR-2014-00936

PATIENT
  Age: 69 Year
  Sex: Female

DRUGS (3)
  1. BACLOFEN [Suspect]
     Indication: CANCER PAIN
  2. DILAUDID [Suspect]
  3. BUPIVACAINE [Suspect]

REACTIONS (2)
  - Renal neoplasm [None]
  - Concomitant disease progression [None]
